FAERS Safety Report 4719515-1 (Version None)
Quarter: 2005Q3

REPORT INFORMATION
  Report Type: 
  Country: None (occurrence: None)
  Receive Date: 20050719
  Receipt Date: 20050705
  Transmission Date: 20060218
  Serious: Yes (Hospitalization)
  Sender: FDA-Public Use
  Company Number: TAP2005Q01140

PATIENT
  Age: 50 Year
  Sex: Male

DRUGS (6)
  1. PREVACID [Suspect]
     Dosage: 30 MG, 1 IN 1 D, PER ORAL
     Route: 048
  2. CIPROFLOXACIN [Concomitant]
  3. FUROSEMIDE (FUROSEMIDE) [Concomitant]
  4. SPIRONOLACTONE [Concomitant]
  5. URSODEXYCHOLIC ACID (URSODEXYCHOLIC ACID) [Concomitant]
  6. FOLIC ACID [Concomitant]

REACTIONS (16)
  - ABDOMINAL DISTENSION [None]
  - ABDOMINAL PAIN [None]
  - ABDOMINAL TENDERNESS [None]
  - ALANINE AMINOTRANSFERASE INCREASED [None]
  - ASPARTATE AMINOTRANSFERASE INCREASED [None]
  - BACTERIAL INFECTION [None]
  - BLOOD ALBUMIN DECREASED [None]
  - CLOSTRIDIAL INFECTION [None]
  - DYSGEUSIA [None]
  - HAEMATOCRIT DECREASED [None]
  - HAEMOGLOBIN DECREASED [None]
  - INTERNATIONAL NORMALISED RATIO INCREASED [None]
  - NAUSEA [None]
  - PERITONITIS BACTERIAL [None]
  - PLATELET COUNT DECREASED [None]
  - PROTHROMBIN TIME PROLONGED [None]
